FAERS Safety Report 13265769 (Version 2)
Quarter: 2017Q1

REPORT INFORMATION
  Report Type: Report from Study
  Country: None (occurrence: US)
  Receive Date: 20170223
  Receipt Date: 20170324
  Transmission Date: 20170428
  Serious: Yes (Congenital Anomaly, Other)
  Sender: FDA-Public Use
  Company Number: US-ABBVIE-17P-163-1881721-00

PATIENT
  Sex: Female

DRUGS (1)
  1. LUPRON DEPOT [Suspect]
     Active Substance: LEUPROLIDE ACETATE
     Indication: MATERNAL EXPOSURE TIMING UNSPECIFIED
     Route: 064

REACTIONS (7)
  - Foetal exposure during pregnancy [Unknown]
  - Limb malformation [Unknown]
  - Upper airway obstruction [Recovered/Resolved]
  - Convulsion neonatal [Recovered/Resolved]
  - Gastrooesophageal reflux disease [Recovered/Resolved]
  - Foetal hypokinesia [Unknown]
  - Developmental delay [Recovered/Resolved]

NARRATIVE: CASE EVENT DATE: 2016
